FAERS Safety Report 6554464-8 (Version None)
Quarter: 2010Q1

REPORT INFORMATION
  Report Type: 
  Country: None (occurrence: None)
  Receive Date: 20100125
  Receipt Date: 20100125
  Transmission Date: 20100710
  Serious: Yes (Life-Threatening)
  Sender: FDA-Public Use
  Company Number: None

PATIENT
  Age: 69 Year
  Sex: Female
  Weight: 77.1115 kg

DRUGS (1)
  1. XELODA [Suspect]
     Indication: BREAST CANCER METASTATIC
     Dosage: TWO 500 MG 2 TIMES A DAY PO
     Route: 048
     Dates: start: 20091027, end: 20100122

REACTIONS (3)
  - BLISTER [None]
  - INTERNATIONAL NORMALISED RATIO INCREASED [None]
  - TONGUE HAEMORRHAGE [None]
